FAERS Safety Report 6000919-4 (Version None)
Quarter: 2008Q4

REPORT INFORMATION
  Report Type: 
  Country: None (occurrence: None)
  Receive Date: 20081215
  Receipt Date: 20081202
  Transmission Date: 20090506
  Serious: Yes (Death, Hospitalization)
  Sender: FDA-Public Use
  Company Number: US-EISAI MEDIAL RESEARCH-E7273-00002-SPO-US

PATIENT
  Age: 79 Year
  Sex: Male
  Weight: 109 kg

DRUGS (7)
  1. TARGRETIN [Suspect]
     Indication: T-CELL LYMPHOMA
     Route: 048
     Dates: start: 20080409
  2. TARGRETIN [Suspect]
     Route: 048
     Dates: start: 20080326, end: 20080401
  3. TARGRETIN [Suspect]
     Route: 048
     Dates: start: 20080311, end: 20080325
  4. TARGRETIN [Suspect]
     Dosage: 4-5 CAPSULES
     Route: 048
     Dates: start: 20080221, end: 20080301
  5. HYDROCHLOROTHIAZIDE [Concomitant]
  6. ZOCOR [Concomitant]
  7. TRICOR [Concomitant]

REACTIONS (1)
  - CEREBROVASCULAR ACCIDENT [None]
